FAERS Safety Report 9630892 (Version 1)
Quarter: 2013Q4

REPORT INFORMATION
  Report Type: Spontaneous
  Country: US (occurrence: None)
  Receive Date: 20131015
  Receipt Date: 20131015
  Transmission Date: 20140711
  Serious: Yes (Other)
  Sender: FDA-Public Use
  Company Number: AEGR000163

PATIENT
  Age: 67 Year
  Sex: Female
  Weight: 105.2 kg

DRUGS (1)
  1. JUXTAPID [Suspect]
     Indication: TYPE IIA HYPERLIPIDAEMIA
     Route: 048
     Dates: start: 201307, end: 20130919

REACTIONS (2)
  - Coronary arterial stent insertion [None]
  - Diarrhoea [None]
